FAERS Safety Report 9395778 (Version 2)
Quarter: 2013Q4

REPORT INFORMATION
  Report Type: Spontaneous
  Country: BR (occurrence: BR)
  Receive Date: 20130711
  Receipt Date: 20131015
  Transmission Date: 20140711
  Serious: Yes (Hospitalization, Other)
  Sender: FDA-Public Use
  Company Number: BR-ASTRAZENECA-2013SE50612

PATIENT
  Age: 79 Year
  Sex: Male
  Weight: 45 kg

DRUGS (11)
  1. CRESTOR [Suspect]
     Indication: BLOOD CHOLESTEROL INCREASED
     Dosage: DAILY
     Route: 048
     Dates: start: 2011
  2. OMEPRAZOLE [Suspect]
     Indication: GASTRITIS
     Route: 048
     Dates: start: 2010
  3. SPIRONOLACTONE [Concomitant]
     Indication: HYPERTENSION
  4. CELEBRA [Concomitant]
     Indication: CEREBRAL ISCHAEMIA
     Dates: start: 2010
  5. FLUIR [Concomitant]
     Indication: EMPHYSEMA
  6. AEROLIN [Concomitant]
     Indication: EMPHYSEMA
  7. ACEBROFILINA [Concomitant]
     Indication: EMPHYSEMA
  8. BUSCOPAN [Concomitant]
     Dates: start: 2010
  9. VERAPAMIL [Concomitant]
     Dates: start: 2010
  10. ASA [Concomitant]
     Dates: start: 2010
  11. UNSPECIFIED MEDICATION [Concomitant]
     Indication: PROSTATIC DISORDER
     Dates: end: 201307

REACTIONS (6)
  - Myocardial infarction [Recovered/Resolved]
  - Coronary artery occlusion [Unknown]
  - Blood cholesterol increased [Unknown]
  - Depression [Recovering/Resolving]
  - Insomnia [Recovering/Resolving]
  - Hypokinesia [Recovering/Resolving]
